FAERS Safety Report 5520962-9 (Version None)
Quarter: 2007Q4

REPORT INFORMATION
  Report Type: 
  Country: None (occurrence: None)
  Receive Date: 20071115
  Receipt Date: 20071106
  Transmission Date: 20080405
  Serious: Yes (Other)
  Sender: FDA-Public Use
  Company Number: TPA2007A02298

PATIENT
  Sex: Female

DRUGS (4)
  1. ROZEREM [Suspect]
     Indication: INITIAL INSOMNIA
     Dosage: PER ORAL
     Route: 048
  2. QUETIAPINE FUMARATE [Concomitant]
  3. LAMOTRIGINE [Concomitant]
  4. CLONAZEPAM [Concomitant]

REACTIONS (5)
  - ABNORMAL BEHAVIOUR [None]
  - DELIRIUM [None]
  - MANIA [None]
  - NERVOUSNESS [None]
  - RESTLESSNESS [None]
